FAERS Safety Report 8108210-7 (Version None)
Quarter: 2012Q1

REPORT INFORMATION
  Report Type: 
  Country: None (occurrence: None)
  Receive Date: 20120202
  Receipt Date: 20120131
  Transmission Date: 20120608
  Serious: Yes (Congenital Anomaly)
  Sender: FDA-Public Use
  Company Number: FR-BAYER-2012-010405

PATIENT
  Age: 1 Day
  Sex: Male

DRUGS (1)
  1. BETASERON [Suspect]
     Dosage: UNK
     Route: 064

REACTIONS (1)
  - CONGENITAL ABSENCE OF BILE DUCTS [None]
